FAERS Safety Report 9181076 (Version 1)
Quarter: 2013Q1

REPORT INFORMATION
  Report Type: Spontaneous
  Country: BR (occurrence: BR)
  Receive Date: 20130322
  Receipt Date: 20130322
  Transmission Date: 20140127
  Serious: Yes (Hospitalization, Other)
  Sender: FDA-Public Use
  Company Number: BR-ABBOTT-13X-020-1064461-00

PATIENT
  Age: 25 Year
  Sex: Male

DRUGS (11)
  1. DEPAKOTE [Suspect]
     Indication: BIPOLAR DISORDER
  2. LITHIUM [Suspect]
     Indication: PRODUCT USED FOR UNKNOWN INDICATION
  3. QUETIAPINE FUMARATE [Suspect]
     Indication: PRODUCT USED FOR UNKNOWN INDICATION
     Dosage: DAY 1
  4. QUETIAPINE FUMARATE [Suspect]
     Dosage: DAY 2
  5. QUETIAPINE FUMARATE [Suspect]
     Dosage: DAY 3
  6. QUETIAPINE FUMARATE [Suspect]
     Dosage: DAY 4
  7. QUETIAPINE FUMARATE [Suspect]
  8. QUETIAPINE FUMARATE [Suspect]
  9. QUETIAPINE FUMARATE [Suspect]
  10. UNKNOWN MEDICATIONS [Suspect]
     Indication: PRODUCT USED FOR UNKNOWN INDICATION
  11. RISPERIDONE [Concomitant]
     Indication: BIPOLAR DISORDER

REACTIONS (18)
  - Suicide attempt [Recovered/Resolved]
  - Suicidal ideation [Recovered/Resolved]
  - Depression [Recovered/Resolved]
  - Weight increased [Unknown]
  - Blood prolactin increased [Unknown]
  - Agitation [Recovered/Resolved]
  - Insomnia [Recovered/Resolved]
  - Disturbance in attention [Recovered/Resolved]
  - Memory impairment [Recovered/Resolved]
  - Cognitive disorder [Recovered/Resolved]
  - Hypomania [Recovered/Resolved]
  - Somnolence [Recovered/Resolved]
  - Dry mouth [Recovered/Resolved]
  - Mood swings [Recovered/Resolved]
  - Adverse drug reaction [Recovered/Resolved]
  - Nasal obstruction [Unknown]
  - Depressive symptom [Recovered/Resolved]
  - Impaired work ability [Unknown]
